FAERS Safety Report 8090197-7 (Version None)
Quarter: 2012Q1

REPORT INFORMATION
  Report Type: 
  Country: None (occurrence: None)
  Receive Date: 20120129
  Receipt Date: 20111024
  Transmission Date: 20120608
  Serious: Yes (Other)
  Sender: FDA-Public Use
  Company Number: US-ABBOTT-11P-163-0867531-00

PATIENT
  Sex: Female
  Weight: 108.05 kg

DRUGS (10)
  1. HUMIRA [Suspect]
     Indication: RHEUMATOID ARTHRITIS
     Route: 058
     Dates: start: 20070101, end: 20101109
  2. METHOTREXATE [Concomitant]
     Indication: RHEUMATOID ARTHRITIS
     Route: 048
  3. METFFORMIN HYDROCHLORIDE [Concomitant]
     Indication: DIABETES MELLITUS
     Route: 048
  4. FOLIC ACID [Concomitant]
     Indication: VITAMIN SUPPLEMENTATION
  5. VICTOZA [Concomitant]
     Indication: DIABETES MELLITUS
     Route: 058
  6. LISINOPRIL [Concomitant]
     Indication: HYPERTENSION
  7. HYDROCHLOROTHIAZIDE [Concomitant]
     Indication: HYPERTENSION
  8. GLIMEPIRIDE [Concomitant]
     Indication: DIABETES MELLITUS
  9. TOPROL-XL [Concomitant]
     Indication: HYPERTENSION
  10. HUMIRA [Suspect]
     Route: 058
     Dates: start: 20110509

REACTIONS (1)
  - BREAST CANCER [None]
